FAERS Safety Report 25302631 (Version 1)
Quarter: 2025Q2

REPORT INFORMATION
  Report Type: Spontaneous
  Country: DE (occurrence: DE)
  Receive Date: 20250512
  Receipt Date: 20250512
  Transmission Date: 20250717
  Serious: Yes (Other)
  Sender: ANI
  Company Number: DE-ANIPHARMA-2025-DE-000035

PATIENT
  Sex: Female

DRUGS (11)
  1. CANDESARTAN CILEXETIL [Suspect]
     Active Substance: CANDESARTAN CILEXETIL
     Indication: Product used for unknown indication
     Dates: start: 202401
  2. FERRO-SANOL DUODENAL [Suspect]
     Active Substance: FERROUS GLYCINE SULFATE
     Dates: start: 202409
  3. FOLIC ACID [Suspect]
     Active Substance: FOLIC ACID
     Dates: start: 202409
  4. PANTOPRAZOLE [Suspect]
     Active Substance: PANTOPRAZOLE
     Dates: start: 202401
  5. MYCOPHENOLATE MOFETIL [Concomitant]
     Active Substance: MYCOPHENOLATE MOFETIL
     Dates: start: 202203, end: 202206
  6. AMLODIPINE [Suspect]
     Active Substance: AMLODIPINE BESYLATE
     Dates: start: 202404
  7. PREDNISOLONE [Suspect]
     Active Substance: PREDNISOLONE
     Dates: start: 2019
  8. DAPAGLIFLOZIN [Suspect]
     Active Substance: DAPAGLIFLOZIN
     Dates: start: 202401
  9. CHOLECALCIFEROL [Suspect]
     Active Substance: CHOLECALCIFEROL
     Dates: start: 202401
  10. CYCLOSPORINE [Suspect]
     Active Substance: CYCLOSPORINE
     Dates: start: 202201
  11. BENLYSTA [Suspect]
     Active Substance: BELIMUMAB
     Dates: start: 202401

REACTIONS (9)
  - Nausea [Unknown]
  - Systemic lupus erythematosus [Unknown]
  - Lupus nephritis [Unknown]
  - Nephrotic syndrome [Unknown]
  - Neutropenia [Unknown]
  - Vasculitis [Unknown]
  - Raynaud^s phenomenon [Unknown]
  - Pain [Unknown]
  - Alopecia [Unknown]

NARRATIVE: CASE EVENT DATE: 20210101
